FAERS Safety Report 12655430 (Version 1)
Quarter: 2016Q3

REPORT INFORMATION
  Report Type: Report from Study
  Country: US (occurrence: US)
  Receive Date: 20160816
  Receipt Date: 20160816
  Transmission Date: 20161109
  Serious: Yes (Hospitalization, Other)
  Sender: FDA-Public Use
  Company Number: US-SA-2016SA146449

PATIENT
  Age: 70 Year
  Sex: Female

DRUGS (1)
  1. LEMTRADA [Suspect]
     Active Substance: ALEMTUZUMAB
     Indication: MULTIPLE SCLEROSIS
     Route: 041
     Dates: start: 20160613, end: 20160617

REACTIONS (6)
  - Fall [Unknown]
  - Activities of daily living impaired [Unknown]
  - Asthenia [Unknown]
  - Dehydration [Unknown]
  - Urinary tract infection [Unknown]
  - Hepatitis C [Unknown]

NARRATIVE: CASE EVENT DATE: 201606
